FAERS Safety Report 6297929-9 (Version None)
Quarter: 2009Q3

REPORT INFORMATION
  Report Type: 
  Country: None (occurrence: None)
  Receive Date: 20090805
  Receipt Date: 20090730
  Transmission Date: 20100115
  Serious: Yes (Other)
  Sender: FDA-Public Use
  Company Number: A0799679A

PATIENT
  Age: 48 Year
  Sex: Male

DRUGS (10)
  1. ADVAIR HFA [Suspect]
     Indication: ASTHMA
     Route: 055
     Dates: start: 20040101
  2. PROVENTIL-HFA [Concomitant]
  3. FLONASE [Concomitant]
  4. CORTEF [Concomitant]
  5. FLAGYL [Concomitant]
  6. CIPRO [Concomitant]
  7. AMOXICILLIN [Concomitant]
  8. NEXIUM [Concomitant]
  9. LOMOTIL [Concomitant]
  10. VITAMIN D [Concomitant]

REACTIONS (5)
  - ASTHMA [None]
  - COUGH [None]
  - DYSPNOEA [None]
  - MEDICATION ERROR [None]
  - PRODUCT QUALITY ISSUE [None]
